FAERS Safety Report 20417327 (Version 1)
Quarter: 2022Q1

REPORT INFORMATION
  Report Type: Spontaneous
  Country: GB (occurrence: GB)
  Receive Date: 20220202
  Receipt Date: 20220202
  Transmission Date: 20220423
  Serious: Yes (Other)
  Sender: FDA-Public Use
  Company Number: GB-ANIPHARMA-2022-UK-000019

PATIENT
  Age: 48 Year
  Sex: Female

DRUGS (1)
  1. CANDESARTAN CILEXETIL [Suspect]
     Active Substance: CANDESARTAN CILEXETIL
     Indication: Ill-defined disorder
     Route: 048

REACTIONS (2)
  - Syncope [Not Recovered/Not Resolved]
  - Paralysis [Not Recovered/Not Resolved]
